FAERS Safety Report 21579367 (Version 1)
Quarter: 2022Q4

REPORT INFORMATION
  Report Type: Spontaneous
  Country: GB (occurrence: GB)
  Receive Date: 20221110
  Receipt Date: 20221110
  Transmission Date: 20230112
  Serious: Yes (Other)
  Sender: FDA-Public Use
  Company Number: GB-MHRA-MED-202210191000268710-JGNBW

PATIENT
  Age: 75 Year
  Sex: Female

DRUGS (2)
  1. EXEMESTANE [Suspect]
     Active Substance: EXEMESTANE
     Indication: Breast cancer
     Dosage: 25 MG
     Dates: start: 20221002, end: 20221016
  2. AMLODIPINE [Concomitant]
     Active Substance: AMLODIPINE BESYLATE
     Indication: Hypertension
     Dosage: UNK

REACTIONS (5)
  - Constipation [Recovered/Resolved]
  - Arthralgia [Recovered/Resolved]
  - Joint stiffness [Recovered/Resolved]
  - Dyspnoea [Recovered/Resolved]
  - Musculoskeletal chest pain [Recovered/Resolved]

NARRATIVE: CASE EVENT DATE: 20221001
